FAERS Safety Report 5645489-5 (Version None)
Quarter: 2008Q1

REPORT INFORMATION
  Report Type: 
  Country: None (occurrence: None)
  Receive Date: 20080229
  Receipt Date: 20071128
  Transmission Date: 20080703
  Serious: No
  Sender: FDA-Public Use
  Company Number: US-BRISTOL-MYERS SQUIBB COMPANY-13996848

PATIENT
  Sex: Female

DRUGS (1)
  1. TAXOL [Suspect]
     Dosage: RECIEVED DRUG ON 27NOV2007 ALSO
     Dates: start: 20071127

REACTIONS (1)
  - EXTRAVASATION [None]
